FAERS Safety Report 6964378-7 (Version None)
Quarter: 2010Q3

REPORT INFORMATION
  Report Type: 
  Country: None (occurrence: None)
  Receive Date: 20100903
  Receipt Date: 20100826
  Transmission Date: 20110219
  Serious: Yes (Other)
  Sender: FDA-Public Use
  Company Number: US-ASTRAZENECA-2009UW02355

PATIENT
  Age: 282 Month
  Sex: Female

DRUGS (4)
  1. SEROQUEL [Suspect]
     Indication: ANXIETY
     Dosage: 100 TO 200 MG PER DAY
     Route: 048
     Dates: start: 20060201
  2. SEROQUEL [Suspect]
     Indication: DEPRESSION
     Dosage: 100 TO 200 MG PER DAY
     Route: 048
     Dates: start: 20060201
  3. SEROQUEL [Suspect]
     Indication: BIPOLAR DISORDER
     Dosage: 100 TO 200 MG PER DAY
     Route: 048
     Dates: start: 20060201
  4. SEROQUEL [Suspect]
     Indication: SLEEP DISORDER
     Dosage: 100 TO 200 MG PER DAY
     Route: 048
     Dates: start: 20060201

REACTIONS (3)
  - DIABETES MELLITUS [None]
  - MULTIPLE INJURIES [None]
  - NEUROPATHY PERIPHERAL [None]
